FAERS Safety Report 7720535-3 (Version None)
Quarter: 2011Q3

REPORT INFORMATION
  Report Type: 
  Country: None (occurrence: None)
  Receive Date: 20110831
  Receipt Date: 20110831
  Transmission Date: 20111222
  Serious: Yes (Hospitalization, Other)
  Sender: FDA-Public Use
  Company Number: None

PATIENT
  Age: 84 Year
  Sex: Male
  Weight: 74 kg

DRUGS (5)
  1. SIMAVASTATIN [Concomitant]
     Route: 048
  2. HEPARIN [Suspect]
     Indication: ATRIAL FIBRILLATION
     Dosage: TITRATE PER PTT
     Route: 018
     Dates: start: 20110525, end: 20110530
  3. LISINOPRIL [Concomitant]
     Route: 048
  4. METOPROLOL TARTRATE [Concomitant]
     Route: 048
  5. DIGOXIN [Concomitant]
     Route: 048

REACTIONS (7)
  - FUNGAEMIA [None]
  - GENERAL PHYSICAL HEALTH DETERIORATION [None]
  - RETROPERITONEAL HAEMORRHAGE [None]
  - RENAL FAILURE ACUTE [None]
  - HAEMATOCRIT DECREASED [None]
  - HYPOTENSION [None]
  - HAEMOGLOBIN DECREASED [None]
